FAERS Safety Report 7672284-8 (Version None)
Quarter: 2011Q3

REPORT INFORMATION
  Report Type: 
  Country: None (occurrence: None)
  Receive Date: 20110809
  Receipt Date: 20110805
  Transmission Date: 20111222
  Serious: Yes (Other)
  Sender: FDA-Public Use
  Company Number: US-PFIZER INC-2007082589

PATIENT
  Sex: Female
  Weight: 83.9 kg

DRUGS (11)
  1. CHANTIX [Suspect]
     Dosage: 1 MG, 2X/DAY
     Dates: start: 20070101, end: 20071001
  2. SINGULAIR [Concomitant]
     Indication: HYPERSENSITIVITY
     Dosage: 10 MG, 1X/DAY
     Route: 048
  3. ALBUTEROL SULFATE AUTOHALER [Concomitant]
     Dosage: UNK
  4. CHANTIX [Suspect]
     Indication: SMOKING CESSATION THERAPY
     Dosage: 0.5 MG, 1X/DAY
     Route: 048
     Dates: start: 20070924, end: 20070101
  5. ALBUTEROL SULFATE AUTOHALER [Concomitant]
     Indication: ASTHMA
     Dosage: TWICE A DAY AS NEEDED
     Route: 055
  6. ATENOLOL [Concomitant]
     Indication: HYPERTENSION
     Dosage: 25 MG, 1X/DAY
     Route: 048
  7. HYDROCODONE [Concomitant]
     Dosage: UNK
  8. FELDENE [Concomitant]
     Indication: INFLAMMATION
     Dosage: 10MG ONCE DAILY AS NEEDED
     Route: 048
  9. MECLIZINE [Concomitant]
     Indication: VERTIGO
     Dosage: 25 MG, AS NEEDED
  10. MORPHINE [Concomitant]
     Dosage: UNK
  11. SINGULAIR [Concomitant]
     Indication: ASTHMA

REACTIONS (8)
  - BLINDNESS [None]
  - VISION BLURRED [None]
  - DYSGEUSIA [None]
  - HEADACHE [None]
  - VERTIGO [None]
  - MYOPIA [None]
  - VISUAL ACUITY REDUCED [None]
  - NAUSEA [None]
